FAERS Safety Report 24710327 (Version 1)
Quarter: 2024Q4

REPORT INFORMATION
  Report Type: Spontaneous
  Country: US (occurrence: US)
  Receive Date: 20241209
  Receipt Date: 20241209
  Transmission Date: 20250115
  Serious: Yes (Other)
  Sender: SANOFI AVENTIS
  Company Number: US-SA-2024SA360951

PATIENT
  Age: 75 Year
  Sex: Male

DRUGS (44)
  1. DUPIXENT [Suspect]
     Active Substance: DUPILUMAB
     Indication: Dermatitis atopic
     Dosage: 300 MG, FREQUENCY : OTHER
     Route: 058
     Dates: start: 20240212
  2. INCRUSE ELLIPTA [Concomitant]
     Active Substance: UMECLIDINIUM BROMIDE
  3. HUMIRA [Concomitant]
     Active Substance: ADALIMUMAB
  4. QVAR [Concomitant]
     Active Substance: BECLOMETHASONE DIPROPIONATE
  5. LACTOSE [Concomitant]
     Active Substance: LACTOSE
  6. AJOVY [Concomitant]
     Active Substance: FREMANEZUMAB-VFRM
  7. XIFAXAN [Concomitant]
     Active Substance: RIFAXIMIN
  8. FLONASE [Concomitant]
     Active Substance: FLUTICASONE PROPIONATE
  9. XIIDRA [Concomitant]
     Active Substance: LIFITEGRAST
  10. ANDROGEL [Concomitant]
     Active Substance: TESTOSTERONE
  11. AUGMENTIN [Concomitant]
     Active Substance: AMOXICILLIN\CLAVULANATE POTASSIUM
  12. TOPIRAMATE [Concomitant]
     Active Substance: TOPIRAMATE
  13. MORPHINE SULFATE [Concomitant]
     Active Substance: MORPHINE SULFATE
  14. OXYCODONE [Concomitant]
     Active Substance: OXYCODONE
  15. SPIRIVA [Concomitant]
     Active Substance: TIOTROPIUM BROMIDE MONOHYDRATE
  16. METROGEL [Concomitant]
     Active Substance: METRONIDAZOLE
  17. CLINDAMYCIN [Concomitant]
     Active Substance: CLINDAMYCIN
  18. NUVIGIL [Concomitant]
     Active Substance: ARMODAFINIL
  19. DICLOFENAC [Concomitant]
     Active Substance: DICLOFENAC
  20. REMICADE [Concomitant]
     Active Substance: INFLIXIMAB
  21. FAMOTIDINE [Concomitant]
     Active Substance: FAMOTIDINE
  22. PREDNISONE [Concomitant]
     Active Substance: PREDNISONE
  23. SUMATRIPTAN [Concomitant]
     Active Substance: SUMATRIPTAN
  24. COSENTYX [Concomitant]
     Active Substance: SECUKINUMAB
  25. ONDANSETRON [Concomitant]
     Active Substance: ONDANSETRON
  26. VALACYCLOVIR [Concomitant]
     Active Substance: VALACYCLOVIR HYDROCHLORIDE
  27. SYMBICORT [Concomitant]
     Active Substance: BUDESONIDE\FORMOTEROL FUMARATE DIHYDRATE
  28. SUCRALFATE [Concomitant]
     Active Substance: SUCRALFATE
  29. HYDROCORTISONE [Concomitant]
     Active Substance: HYDROCORTISONE
  30. MUPIROCIN [Concomitant]
     Active Substance: MUPIROCIN
  31. TETRACYCLINE [Concomitant]
     Active Substance: TETRACYCLINE
  32. FLUCONAZOLE [Concomitant]
     Active Substance: FLUCONAZOLE
  33. TAMSULOSIN [Concomitant]
     Active Substance: TAMSULOSIN
  34. OTEZLA [Concomitant]
     Active Substance: APREMILAST
  35. PREVIDENT [Concomitant]
     Active Substance: SODIUM FLUORIDE
  36. MOVANTIK [Concomitant]
     Active Substance: NALOXEGOL OXALATE
  37. RECLAST [Concomitant]
     Active Substance: ZOLEDRONIC ACID
  38. FUROSEMIDE [Concomitant]
     Active Substance: FUROSEMIDE
  39. AIMOVIG [Concomitant]
     Active Substance: ERENUMAB\ERENUMAB-AOOE
  40. AZELASTINE [Concomitant]
     Active Substance: AZELASTINE
  41. ORENCIA [Concomitant]
     Active Substance: ABATACEPT
  42. ASCORBIC ACID [Concomitant]
     Active Substance: ASCORBIC ACID
  43. VITAMIN B [Concomitant]
     Active Substance: VITAMIN B
  44. NYSTATIN [Concomitant]
     Active Substance: NYSTATIN

REACTIONS (1)
  - Psoriatic arthropathy [Unknown]

NARRATIVE: CASE EVENT DATE: 20241202
